FAERS Safety Report 12679239 (Version 1)
Quarter: 2016Q3

REPORT INFORMATION
  Report Type: Spontaneous
  Country: US (occurrence: None)
  Receive Date: 20160823
  Receipt Date: 20160823
  Transmission Date: 20161109
  Serious: No
  Sender: FDA-Public Use
  Company Number: None

PATIENT
  Age: 49 Year
  Sex: Female
  Weight: 79.38 kg

DRUGS (1)
  1. ESCITALOPRAM [Suspect]
     Active Substance: ESCITALOPRAM OXALATE
     Indication: ANXIETY
     Route: 048
     Dates: start: 20160626, end: 20160821

REACTIONS (5)
  - Product substitution issue [None]
  - Somnolence [None]
  - Weight increased [None]
  - Product formulation issue [None]
  - Drug dose omission [None]

NARRATIVE: CASE EVENT DATE: 20160731
